FAERS Safety Report 15850897 (Version 1)
Quarter: 2019Q1

REPORT INFORMATION
  Report Type: Spontaneous
  Country: BR (occurrence: BR)
  Receive Date: 20190121
  Receipt Date: 20190121
  Transmission Date: 20190417
  Serious: Yes (Death, Life-Threatening, Other)
  Sender: FDA-Public Use
  Company Number: BR-BAXTER-2019BAX000980

PATIENT
  Age: 54 Year
  Sex: Female

DRUGS (2)
  1. EXOMAX [Suspect]
     Active Substance: FLUCONAZOLE
     Indication: CRYPTOCOCCOSIS
     Route: 065
  2. AMPHOTERICIN B. [Suspect]
     Active Substance: AMPHOTERICIN B
     Indication: CRYPTOCOCCOSIS
     Route: 065

REACTIONS (5)
  - Renal failure [Fatal]
  - Drug ineffective [Fatal]
  - Sepsis [Fatal]
  - Toxicity to various agents [Fatal]
  - Aspiration [Fatal]
